FAERS Safety Report 4847114-X (Version None)
Quarter: 2005Q4

REPORT INFORMATION
  Report Type: 
  Country: None (occurrence: None)
  Receive Date: 20051207
  Receipt Date: 20051122
  Transmission Date: 20060501
  Serious: Yes (Hospitalization)
  Sender: FDA-Public Use
  Company Number: GBWYE162122NOV05

PATIENT
  Sex: Male

DRUGS (2)
  1. ENBREL [Suspect]
     Indication: DRUG USE FOR UNKNOWN INDICATION
     Route: 065
     Dates: start: 20040924, end: 20050801
  2. METHOTREXATE [Concomitant]
     Route: 065

REACTIONS (2)
  - GASTROINTESTINAL CARCINOMA [None]
  - RECURRENT CANCER [None]
